FAERS Safety Report 8313849-X (Version None)
Quarter: 2012Q2

REPORT INFORMATION
  Report Type: 
  Country: None (occurrence: None)
  Receive Date: 20120426
  Receipt Date: 20120416
  Transmission Date: 20120825
  Serious: Yes (Hospitalization, Other)
  Sender: FDA-Public Use
  Company Number: US-CELGENEUS-163-21880-12012043

PATIENT
  Sex: Female

DRUGS (4)
  1. TRAMADOL HCL [Concomitant]
     Route: 065
  2. REVLIMID [Suspect]
     Route: 048
  3. TRANSFUSION [Concomitant]
     Dosage: 2 UNITS
     Route: 041
  4. EXTRA STRENGTH TYLENOL [Concomitant]
     Route: 065

REACTIONS (5)
  - ASPARTATE AMINOTRANSFERASE ABNORMAL [None]
  - MULTIPLE MYELOMA [None]
  - BACK PAIN [None]
  - BLOOD LACTATE DEHYDROGENASE ABNORMAL [None]
  - PRODUCTIVE COUGH [None]
